FAERS Safety Report 9322813 (Version 8)
Quarter: 2014Q2

REPORT INFORMATION
  Report Type: Spontaneous
  Country: US (occurrence: US)
  Receive Date: 20130601
  Receipt Date: 20140527
  Transmission Date: 20141212
  Serious: Yes (Hospitalization, Disabling, Other)
  Sender: FDA-Public Use
  Company Number: US-ASTRAZENECA-2013SE38566

PATIENT
  Age: 56 Year
  Sex: Female

DRUGS (31)
  1. NEXIUM [Suspect]
     Indication: HIATUS HERNIA
     Route: 048
     Dates: start: 2000, end: 2011
  2. NEXIUM [Suspect]
     Indication: GASTROOESOPHAGEAL REFLUX DISEASE
     Route: 048
     Dates: start: 2000, end: 2011
  3. NEXIUM [Suspect]
     Indication: HIATUS HERNIA
     Route: 048
     Dates: start: 20040123
  4. NEXIUM [Suspect]
     Indication: GASTROOESOPHAGEAL REFLUX DISEASE
     Route: 048
     Dates: start: 20040123
  5. NEXIUM [Suspect]
     Indication: HIATUS HERNIA
     Route: 048
     Dates: start: 20080609
  6. NEXIUM [Suspect]
     Indication: GASTROOESOPHAGEAL REFLUX DISEASE
     Route: 048
     Dates: start: 20080609
  7. NEXIUM [Suspect]
     Indication: HIATUS HERNIA
     Route: 048
     Dates: start: 20120522
  8. NEXIUM [Suspect]
     Indication: GASTROOESOPHAGEAL REFLUX DISEASE
     Route: 048
     Dates: start: 20120522
  9. ZANTAC [Concomitant]
  10. ZANTAC [Concomitant]
     Dates: start: 2007
  11. DEXILANT [Concomitant]
  12. VITAMIN B 12 [Concomitant]
  13. COUMADIN [Concomitant]
  14. PREDNISONE [Concomitant]
     Dates: start: 20051015
  15. LASIX [Concomitant]
     Route: 048
     Dates: start: 20120907
  16. TRADJENTA [Concomitant]
     Route: 048
     Dates: start: 20120907
  17. CLARITIN [Concomitant]
     Route: 048
     Dates: start: 20120907
  18. VALIUM [Concomitant]
     Route: 048
     Dates: start: 20120907
  19. PROTONIX [Concomitant]
     Route: 048
     Dates: start: 20120719
  20. PRILOSEC [Concomitant]
  21. DIOVAN [Concomitant]
  22. AMITIZA [Concomitant]
  23. LISINOPRIL [Concomitant]
  24. ZETIA [Concomitant]
  25. CRESTOR [Concomitant]
  26. ALBUTEROL [Concomitant]
     Dosage: ONE VIAL VIA NEB
     Dates: start: 20071219
  27. LORTAB [Concomitant]
     Dosage: 7.5/500 ONE PO TID
     Route: 048
     Dates: start: 20080130
  28. ADVAIR [Concomitant]
     Dosage: 250/50 ONE INHALATION BID
     Dates: start: 20080130
  29. PHENERGAN [Concomitant]
     Dates: start: 20080130
  30. PREVACID [Concomitant]
     Dates: start: 20080311
  31. SPIRIVA [Concomitant]
     Dates: start: 20090928

REACTIONS (20)
  - Pulmonary embolism [Unknown]
  - Pulmonary infarction [Unknown]
  - Walking aid user [Unknown]
  - Diabetic neuropathy [Unknown]
  - Osteoporosis [Unknown]
  - Bone disorder [Unknown]
  - Foot fracture [Unknown]
  - Intervertebral disc degeneration [Unknown]
  - Back injury [Unknown]
  - Calcium deficiency [Unknown]
  - Chronic obstructive pulmonary disease [Unknown]
  - Type 2 diabetes mellitus [Unknown]
  - Vitamin D deficiency [Unknown]
  - Osteopenia [Unknown]
  - Compression fracture [Unknown]
  - Limb injury [Unknown]
  - Osteoarthritis [Unknown]
  - Fall [Unknown]
  - Scoliosis [Unknown]
  - Arthralgia [Unknown]
